FAERS Safety Report 4303081-9 (Version None)
Quarter: 2004Q1

REPORT INFORMATION
  Report Type: 
  Country: None (occurrence: None)
  Receive Date: 20040126
  Receipt Date: 20030929
  Transmission Date: 20041129
  Serious: No
  Sender: FDA-Public Use
  Company Number: USA030948510

PATIENT
  Age: 6 Year
  Sex: Female

DRUGS (2)
  1. STRATTERA [Suspect]
     Dosage: 25 MG/DAY
  2. ZITHROMAX [Concomitant]

REACTIONS (2)
  - DRUG INTERACTION [None]
  - PSYCHOMOTOR HYPERACTIVITY [None]
